FAERS Safety Report 5855887-2 (Version None)
Quarter: 2008Q3

REPORT INFORMATION
  Report Type: 
  Country: None (occurrence: None)
  Receive Date: 20080821
  Receipt Date: 20080821
  Transmission Date: 20090109
  Serious: Yes (Other)
  Sender: FDA-Public Use
  Company Number: None

PATIENT
  Age: 76 Year
  Sex: Female
  Weight: 68.0396 kg

DRUGS (1)
  1. SENSORCAINE [Suspect]

REACTIONS (5)
  - CONVULSION [None]
  - DYSGRAPHIA [None]
  - ERYTHEMA [None]
  - NERVOUSNESS [None]
  - TREMOR [None]
